FAERS Safety Report 24825121 (Version 1)
Quarter: 2025Q1

REPORT INFORMATION
  Report Type: Spontaneous
  Country: US (occurrence: None)
  Receive Date: 20250108
  Receipt Date: 20250108
  Transmission Date: 20250409
  Serious: No
  Sender: FDA-CTU
  Company Number: None

PATIENT
  Age: 43 Year
  Sex: Female
  Weight: 94.95 kg

DRUGS (1)
  1. WEGOVY [Suspect]
     Active Substance: SEMAGLUTIDE

REACTIONS (8)
  - Suicidal ideation [None]
  - Intrusive thoughts [None]
  - Constipation [None]
  - Hunger [None]
  - Abdominal pain upper [None]
  - Violence-related symptom [None]
  - Nausea [None]
  - Nightmare [None]

NARRATIVE: CASE EVENT DATE: 20250108
